FAERS Safety Report 5563917-0 (Version None)
Quarter: 2007Q4

REPORT INFORMATION
  Report Type: 
  Country: None (occurrence: None)
  Receive Date: 20071217
  Receipt Date: 20071008
  Transmission Date: 20080405
  Serious: No
  Sender: FDA-Public Use
  Company Number: US-ASTRAZENECA-2007UW23333

PATIENT
  Age: 64 Year
  Sex: Female
  Weight: 102.5 kg

DRUGS (7)
  1. CRESTOR [Suspect]
     Indication: BLOOD CHOLESTEROL INCREASED
     Dosage: 30 OR 40 COUNT BOTTLE
     Route: 048
  2. INSULIN [Concomitant]
  3. ALLOPURINOL [Concomitant]
  4. COREG [Concomitant]
  5. CLONIDINE [Concomitant]
  6. NIFEDIPINE [Concomitant]
  7. COUMADIN [Concomitant]

REACTIONS (1)
  - BLOOD CALCIUM INCREASED [None]
